FAERS Safety Report 25410768 (Version 2)
Quarter: 2025Q2

REPORT INFORMATION
  Report Type: Spontaneous
  Country: NL (occurrence: NL)
  Receive Date: 20250609
  Receipt Date: 20250614
  Transmission Date: 20250716
  Serious: Yes (Other)
  Sender: AUROBINDO
  Company Number: NL-20250526-803896596

PATIENT
  Age: 22 Year
  Sex: Female

DRUGS (4)
  1. COLCHICINE [Suspect]
     Active Substance: COLCHICINE
     Indication: PSTPIP1-associated myeloid-related proteinaemia inflammatory syndrome
     Route: 065
  2. COLCHICINE [Suspect]
     Active Substance: COLCHICINE
     Indication: Secondary amyloidosis
  3. CANAKINUMAB [Suspect]
     Active Substance: CANAKINUMAB
     Indication: PSTPIP1-associated myeloid-related proteinaemia inflammatory syndrome
     Route: 065
  4. CANAKINUMAB [Suspect]
     Active Substance: CANAKINUMAB
     Indication: Secondary amyloidosis

REACTIONS (1)
  - Drug ineffective [Unknown]
